FAERS Safety Report 19904190 (Version 2)
Quarter: 2022Q1

REPORT INFORMATION
  Report Type: Spontaneous
  Country: PL (occurrence: PL)
  Receive Date: 20211001
  Receipt Date: 20220217
  Transmission Date: 20220423
  Serious: No
  Sender: FDA-Public Use
  Company Number: PL-MLMSERVICE-20210831-3081703-2

PATIENT
  Age: 78 Year
  Sex: Female

DRUGS (4)
  1. TRAMADOL [Interacting]
     Active Substance: TRAMADOL
     Indication: Sciatica
     Dosage: UNK
     Route: 065
  2. QUETIAPINE [Interacting]
     Active Substance: QUETIAPINE
     Indication: Insomnia
     Dosage: UNK
     Route: 065
  3. DIPHENHYDRAMINE [Interacting]
     Active Substance: DIPHENHYDRAMINE
     Indication: Product used for unknown indication
     Dosage: UNK
     Route: 065
  4. PROPAFENONE [Interacting]
     Active Substance: PROPAFENONE
     Indication: Atrial fibrillation
     Dosage: UNK
     Route: 065

REACTIONS (4)
  - Tinnitus [Recovering/Resolving]
  - Drug interaction [Recovering/Resolving]
  - Contraindicated product administered [Recovering/Resolving]
  - Drug level increased [Recovering/Resolving]
